FAERS Safety Report 8546055-4 (Version None)
Quarter: 2012Q3

REPORT INFORMATION
  Report Type: 
  Country: None (occurrence: None)
  Receive Date: 20120727
  Receipt Date: 20111205
  Transmission Date: 20120928
  Serious: No
  Sender: FDA-Public Use
  Company Number: US-ASTRAZENECA-2011SE73702

PATIENT
  Sex: Male

DRUGS (5)
  1. SEROQUEL XR [Suspect]
     Dosage: 1 TO 3 50 MG PILL DURING DAY OR NIGHT
     Route: 048
  2. SEROQUEL XR [Suspect]
     Dosage: 1 TO 3 50 MG PILL DURING DAY OR NIGHT
     Route: 048
  3. SEROQUEL XR [Suspect]
     Indication: ANXIETY
     Route: 048
     Dates: start: 20110701
  4. SEROQUEL XR [Suspect]
     Indication: DEPRESSION
     Route: 048
     Dates: start: 20110701
  5. LISINOPRIL [Concomitant]
     Indication: BLOOD PRESSURE

REACTIONS (3)
  - SOMNOLENCE [None]
  - OFF LABEL USE [None]
  - WEIGHT INCREASED [None]
